FAERS Safety Report 20282460 (Version 1)
Quarter: 2022Q1

REPORT INFORMATION
  Report Type: Spontaneous
  Country: US (occurrence: None)
  Receive Date: 20220101
  Receipt Date: 20220101
  Transmission Date: 20220423
  Serious: Yes (Hospitalization)
  Sender: FDA-Public Use
  Company Number: None

PATIENT
  Age: 79 Year
  Sex: Male
  Weight: 70.31 kg

DRUGS (1)
  1. PEMBROLIZUMAB [Suspect]
     Active Substance: PEMBROLIZUMAB
     Indication: Metastatic malignant melanoma
     Dosage: FREQUENCY : ONCE;?
     Route: 042
     Dates: start: 20210607, end: 20210607

REACTIONS (9)
  - Pyrexia [None]
  - Chills [None]
  - Dyspnoea [None]
  - Nausea [None]
  - Myalgia [None]
  - Arthralgia [None]
  - Vomiting [None]
  - Asthenia [None]
  - Bone pain [None]

NARRATIVE: CASE EVENT DATE: 20210608
